FAERS Safety Report 8139735-6 (Version None)
Quarter: 2012Q1

REPORT INFORMATION
  Report Type: 
  Country: None (occurrence: None)
  Receive Date: 20120215
  Receipt Date: 20120213
  Transmission Date: 20120608
  Serious: Yes (Death)
  Sender: FDA-Public Use
  Company Number: PHHY2012CA012460

PATIENT
  Weight: 54.4 kg

DRUGS (8)
  1. MIACALCIN [Concomitant]
     Dosage: 200 IU, QD
     Route: 045
  2. ZOLEDRONOC ACID [Suspect]
     Dosage: 5 MG/100 ML
     Route: 042
     Dates: start: 20100205
  3. DIDROCAL [Concomitant]
     Dosage: 400 MG, QD
  4. VITAMIN D [Concomitant]
     Dosage: 800 IU, QD
  5. EVISTA [Concomitant]
     Dosage: 670 MG, QD
  6. FORTEO [Concomitant]
     Dosage: 20 MG, QD
  7. HORMONES NOS [Concomitant]
     Dosage: DAILY
  8. CALCIUM [Concomitant]
     Dosage: 600 MG, QD

REACTIONS (2)
  - BLOOD PRESSURE INCREASED [None]
  - DEATH [None]
